FAERS Safety Report 6915689-2 (Version None)
Quarter: 2010Q3

REPORT INFORMATION
  Report Type: 
  Country: None (occurrence: None)
  Receive Date: 20100810
  Receipt Date: 20100730
  Transmission Date: 20110219
  Serious: No
  Sender: FDA-Public Use
  Company Number: BR-JNJFOC-20100707606

PATIENT
  Age: 31 Year
  Sex: Male
  Weight: 57 kg

DRUGS (4)
  1. DURAGESIC-100 [Suspect]
     Indication: PAIN
     Route: 062
  2. DURAGESIC-100 [Suspect]
     Dosage: 50+50UG/HR
     Route: 062
  3. DURAGESIC-100 [Suspect]
     Route: 062
  4. MORPHINE [Concomitant]
     Indication: PAIN
     Route: 065

REACTIONS (4)
  - DRUG INEFFECTIVE [None]
  - EXPIRED DRUG ADMINISTERED [None]
  - PRODUCT ADHESION ISSUE [None]
  - WRONG TECHNIQUE IN DRUG USAGE PROCESS [None]
